FAERS Safety Report 19079991 (Version 1)
Quarter: 2021Q1

REPORT INFORMATION
  Report Type: Spontaneous
  Country: CN (occurrence: CN)
  Receive Date: 20210331
  Receipt Date: 20210331
  Transmission Date: 20210420
  Serious: Yes (Hospitalization)
  Sender: FDA-Public Use
  Company Number: CN-ELI_LILLY_AND_COMPANY-CN202103010975

PATIENT
  Sex: Female

DRUGS (2)
  1. FLUOXETINE HYDROCHLORIDE. [Suspect]
     Active Substance: FLUOXETINE HYDROCHLORIDE
     Indication: DEPRESSION
     Dosage: 280 MG, DAILY
     Route: 048
     Dates: start: 20200421, end: 20200421
  2. OLANZAPINE. [Suspect]
     Active Substance: OLANZAPINE
     Indication: DEPRESSION
     Dosage: 70 MG, DAILY
     Route: 048
     Dates: start: 20200421, end: 20200421

REACTIONS (6)
  - Joint injury [Unknown]
  - Overdose [Unknown]
  - Dizziness [Recovering/Resolving]
  - Suicide attempt [Unknown]
  - Abdominal discomfort [Recovering/Resolving]
  - Asthenia [Recovering/Resolving]
